FAERS Safety Report 8607545-9 (Version None)
Quarter: 2012Q3

REPORT INFORMATION
  Report Type: 
  Country: None (occurrence: None)
  Receive Date: 20120821
  Receipt Date: 20120809
  Transmission Date: 20120928
  Serious: Yes (Hospitalization, Other)
  Sender: FDA-Public Use
  Company Number: US-BAYER-2012-040172

PATIENT
  Age: 24 Year
  Sex: Female
  Weight: 63.492 kg

DRUGS (7)
  1. DROSPIRENONE AND ETHINYL ESTRADIOL [Suspect]
     Indication: CONTRACEPTION
     Dosage: UNK
     Dates: start: 20091111, end: 20100503
  2. MIDRIN [Concomitant]
  3. SYNTHROID [Concomitant]
     Indication: HYPOTHYROIDISM
     Dosage: 88 ?G, DAILY
     Route: 048
     Dates: start: 20080101, end: 20110101
  4. DROSPIRENONE AND ETHINYL ESTRADIOL [Suspect]
     Indication: ACNE
  5. TOPAMAX [Concomitant]
  6. SYNTHROID [Concomitant]
     Dosage: UNK
     Dates: start: 20090809, end: 20110122
  7. SUMATRIPTAN [Concomitant]
     Indication: MIGRAINE
     Dosage: UPTO 4 TIMES A DAY, PRN
     Route: 048

REACTIONS (44)
  - INJURY [None]
  - PAIN [None]
  - BACK PAIN [None]
  - DISORIENTATION [None]
  - HEMIPARESIS [None]
  - DYSARTHRIA [None]
  - BLINDNESS TRANSIENT [None]
  - ASTHENIA [None]
  - BALANCE DISORDER [None]
  - EMOTIONAL DISTRESS [None]
  - PAIN IN EXTREMITY [None]
  - MOVEMENT DISORDER [None]
  - CONVULSION [None]
  - NIGHT BLINDNESS [None]
  - GAIT DISTURBANCE [None]
  - VERTIGO [None]
  - ARTHRALGIA [None]
  - AMNESIA [None]
  - VIITH NERVE PARALYSIS [None]
  - DYSPHEMIA [None]
  - MOTOR DYSFUNCTION [None]
  - CEREBROVASCULAR ACCIDENT [None]
  - ABASIA [None]
  - APHASIA [None]
  - HEARING IMPAIRED [None]
  - BODY TEMPERATURE FLUCTUATION [None]
  - FEAR [None]
  - NECK PAIN [None]
  - MUSCULOSKELETAL STIFFNESS [None]
  - HYPOAESTHESIA [None]
  - PARAESTHESIA [None]
  - HEADACHE [None]
  - CEREBELLAR INFARCTION [None]
  - MUSCULOSKELETAL PAIN [None]
  - CONVERSION DISORDER [None]
  - VISUAL IMPAIRMENT [None]
  - DIZZINESS [None]
  - NAUSEA [None]
  - VERTEBRAL ARTERY OCCLUSION [None]
  - ANXIETY [None]
  - GENERAL PHYSICAL HEALTH DETERIORATION [None]
  - TREMOR [None]
  - DYSPNOEA [None]
  - DYSSTASIA [None]
